FAERS Safety Report 7375162 (Version 2)
Quarter: 2013Q1

REPORT INFORMATION
  Report Type: Spontaneous
  Country: US (occurrence: US)
  Receive Date: 20100503
  Receipt Date: 20130211
  Transmission Date: 20140127
  Serious: No
  Sender: FDA-Public Use
  Company Number: US-ASTRAZENECA-2009SE25420

PATIENT
  Age: 61 Year
  Sex: Female
  Weight: 70.3 kg

DRUGS (8)
  1. NEXIUM [Suspect]
     Indication: GASTROOESOPHAGEAL REFLUX DISEASE
     Route: 048
     Dates: start: 200910
  2. NEXIUM [Suspect]
     Indication: OESOPHAGITIS
     Route: 048
     Dates: start: 200910
  3. OMEPRAZOLE [Suspect]
     Route: 048
  4. MULTIVITAMIN [Concomitant]
  5. CALCIUM [Concomitant]
  6. GAVISCON ANTACID [Concomitant]
  7. SYNTHROID [Concomitant]
     Indication: HYPOTHYROIDISM
     Dates: start: 2012
  8. ARIMIDEX [Suspect]
     Indication: BREAST CANCER
     Route: 048
     Dates: start: 20091227, end: 20100412

REACTIONS (13)
  - Hiatus hernia [Unknown]
  - Chest discomfort [Unknown]
  - Oropharyngeal discomfort [Unknown]
  - Osteopenia [Unknown]
  - Hypothyroidism [Unknown]
  - Gastrooesophageal reflux disease [Recovering/Resolving]
  - Weight decreased [Unknown]
  - Impaired gastric emptying [Unknown]
  - Vitamin D decreased [Unknown]
  - Vulvovaginal dryness [Unknown]
  - Asthenia [Recovering/Resolving]
  - Nausea [Unknown]
  - Drug ineffective [Unknown]
